FAERS Safety Report 16191325 (Version 1)
Quarter: 2019Q2

REPORT INFORMATION
  Report Type: Spontaneous
  Country: US (occurrence: US)
  Receive Date: 20190412
  Receipt Date: 20190412
  Transmission Date: 20190711
  Serious: No
  Sender: FDA-Public Use
  Company Number: US-ASTRAZENECA-2019SE43886

PATIENT
  Sex: Female

DRUGS (1)
  1. GENERIC CRESTOR [Suspect]
     Active Substance: ROSUVASTATIN CALCIUM
     Indication: BLOOD CHOLESTEROL INCREASED
     Dosage: UNKNOWN DOSE, TAKEN AT NIGHT
     Route: 048

REACTIONS (6)
  - Restlessness [Unknown]
  - Low density lipoprotein increased [Unknown]
  - Insomnia [Unknown]
  - Myalgia [Unknown]
  - Cystitis [Unknown]
  - Dizziness [Unknown]
